FAERS Safety Report 13535183 (Version 1)
Quarter: 2017Q2

REPORT INFORMATION
  Report Type: Spontaneous
  Country: US (occurrence: US)
  Receive Date: 20170511
  Receipt Date: 20170511
  Transmission Date: 20170830
  Serious: No
  Sender: FDA-Public Use
  Company Number: US-ASTRAZENECA-2017SE47268

PATIENT
  Sex: Female
  Weight: 63.5 kg

DRUGS (4)
  1. PULMICORT FLEXHALER [Suspect]
     Active Substance: BUDESONIDE
     Indication: ASTHMA
     Route: 055
  2. FLONASE [Concomitant]
     Active Substance: FLUTICASONE PROPIONATE
  3. PROAIR ALBUTEROL INHALER [Concomitant]
     Indication: HYPERSENSITIVITY
  4. ZYRTEC [Concomitant]
     Active Substance: CETIRIZINE HYDROCHLORIDE

REACTIONS (7)
  - Malaise [Unknown]
  - Inability to afford medication [Unknown]
  - Asthma [Unknown]
  - Drug dose omission [Unknown]
  - Off label use [Unknown]
  - Seasonal allergy [Unknown]
  - Dyspnoea [Unknown]
